FAERS Safety Report 19843965 (Version 1)
Quarter: 2021Q3

REPORT INFORMATION
  Report Type: Spontaneous
  Country: GB (occurrence: GB)
  Receive Date: 20210916
  Receipt Date: 20210916
  Transmission Date: 20211014
  Serious: Yes (Other)
  Sender: FDA-Public Use
  Company Number: NVSC2021GB200292

PATIENT
  Age: 54 Year
  Sex: Female

DRUGS (3)
  1. ADALIMUMAB [Suspect]
     Active Substance: ADALIMUMAB
     Indication: PSORIATIC ARTHROPATHY
     Dosage: UNK
     Route: 065
     Dates: start: 202103, end: 202103
  2. HUMIRA [Suspect]
     Active Substance: ADALIMUMAB
     Dosage: 40 MG, BIW
     Route: 058
     Dates: start: 2021
  3. HUMIRA [Suspect]
     Active Substance: ADALIMUMAB
     Indication: PSORIATIC ARTHROPATHY
     Dosage: 40 MG, QW
     Route: 058
     Dates: start: 202103

REACTIONS (8)
  - Drug hypersensitivity [Unknown]
  - Allergic oedema [Unknown]
  - COVID-19 [Unknown]
  - Dermatitis allergic [Unknown]
  - Liver function test increased [Unknown]
  - Drug ineffective [Unknown]
  - Psoriatic arthropathy [Unknown]
  - Feeling hot [Unknown]

NARRATIVE: CASE EVENT DATE: 2021
